FAERS Safety Report 6436340-4 (Version None)
Quarter: 2009Q4

REPORT INFORMATION
  Report Type: 
  Country: None (occurrence: None)
  Receive Date: 20091111
  Receipt Date: 20091109
  Transmission Date: 20100525
  Serious: Yes (Other)
  Sender: FDA-Public Use
  Company Number: A0808797A

PATIENT
  Age: 38 Year
  Sex: Female
  Weight: 130.9 kg

DRUGS (6)
  1. ALLI [Suspect]
     Route: 048
     Dates: end: 20090831
  2. LOPRESSOR [Concomitant]
  3. WELLBUTRIN [Concomitant]
     Route: 048
  4. PRILOSEC [Concomitant]
  5. LAMICTAL [Concomitant]
  6. GEODON [Concomitant]

REACTIONS (2)
  - LABORATORY TEST ABNORMAL [None]
  - RENAL FAILURE [None]
